FAERS Safety Report 7543676-2 (Version None)
Quarter: 2011Q2

REPORT INFORMATION
  Report Type: 
  Country: None (occurrence: None)
  Receive Date: 20110613
  Receipt Date: 20030702
  Transmission Date: 20111010
  Serious: Yes (Other)
  Sender: FDA-Public Use
  Company Number: PHHO2003CA08481

PATIENT
  Sex: Male

DRUGS (1)
  1. CLOZARIL [Suspect]
     Indication: SCHIZOPHRENIA
     Dosage: UNSPECIFIED
     Route: 048
     Dates: start: 20030204

REACTIONS (2)
  - NEUTROPENIA [None]
  - INFECTIOUS MONONUCLEOSIS [None]
